FAERS Safety Report 25081720 (Version 2)
Quarter: 2025Q1

REPORT INFORMATION
  Report Type: Report from Study
  Country: US (occurrence: US)
  Receive Date: 20250316
  Receipt Date: 20250320
  Transmission Date: 20250408
  Serious: Yes (Hospitalization)
  Sender: PAREXEL
  Company Number: US-STEMLINE THERAPEUTICS, INC-2025-STML-US000836

PATIENT

DRUGS (18)
  1. ORSERDU [Suspect]
     Active Substance: ELACESTRANT
     Indication: Metastases to skin
     Dosage: 345 MG, DAILY
     Route: 048
     Dates: start: 202502
  2. TRUQAP [Suspect]
     Active Substance: CAPIVASERTIB
     Indication: Product used for unknown indication
     Route: 065
  3. IMODIUM A-D [Suspect]
     Active Substance: LOPERAMIDE HYDROCHLORIDE
     Indication: Diarrhoea
     Route: 065
  4. BENADRYL [Concomitant]
     Active Substance: DIPHENHYDRAMINE HYDROCHLORIDE
     Indication: Product used for unknown indication
  5. DIETARY SUPPLEMENT\HERBALS\INDIAN FRANKINCENSE [Concomitant]
     Active Substance: DIETARY SUPPLEMENT\HERBALS\INDIAN FRANKINCENSE
     Indication: Product used for unknown indication
  6. HYDROCORTISONE [Concomitant]
     Active Substance: HYDROCORTISONE
     Indication: Product used for unknown indication
  7. HYDROXYCHLOROQUINE SULFATE [Concomitant]
     Active Substance: HYDROXYCHLOROQUINE SULFATE
     Indication: Product used for unknown indication
  8. IBRANCE [Concomitant]
     Active Substance: PALBOCICLIB
     Indication: Product used for unknown indication
  9. METFORMIN [Concomitant]
     Active Substance: METFORMIN HYDROCHLORIDE
     Indication: Product used for unknown indication
  10. METHYLPREDNISOLONE [Concomitant]
     Active Substance: METHYLPREDNISOLONE
     Indication: Product used for unknown indication
  11. PEPCID [Concomitant]
     Active Substance: FAMOTIDINE
     Indication: Product used for unknown indication
  12. QUERCETIN [Concomitant]
     Active Substance: QUERCETIN
     Indication: Product used for unknown indication
  13. DIETARY SUPPLEMENT\RESVERATROL [Concomitant]
     Active Substance: DIETARY SUPPLEMENT\RESVERATROL
     Indication: Product used for unknown indication
  14. TIROSINT [Concomitant]
     Active Substance: LEVOTHYROXINE SODIUM
     Indication: Product used for unknown indication
  15. VITAMIN D3 [Concomitant]
     Active Substance: CHOLECALCIFEROL
     Indication: Product used for unknown indication
  16. VITAMIN E [Concomitant]
     Active Substance: .ALPHA.-TOCOPHEROL
     Indication: Product used for unknown indication
  17. MENAQUINONE 6 [Concomitant]
     Active Substance: MENAQUINONE 6
     Indication: Product used for unknown indication
  18. ZINC [Concomitant]
     Active Substance: ZINC
     Indication: Product used for unknown indication

REACTIONS (4)
  - Urticaria [Recovering/Resolving]
  - Illness [Not Recovered/Not Resolved]
  - Diarrhoea [Recovering/Resolving]
  - Product use in unapproved indication [Unknown]
